FAERS Safety Report 7994965-9 (Version None)
Quarter: 2011Q4

REPORT INFORMATION
  Report Type: 
  Country: None (occurrence: None)
  Receive Date: 20111220
  Receipt Date: 20110908
  Transmission Date: 20120403
  Serious: No
  Sender: FDA-Public Use
  Company Number: US-MYLANLABS-2011S1019000

PATIENT
  Age: 68 Year
  Sex: Female

DRUGS (5)
  1. HYDROCODONE [Concomitant]
     Indication: BREAKTHROUGH PAIN
     Route: 048
     Dates: start: 20110101
  2. M.V.I. [Concomitant]
     Indication: VITAMIN SUPPLEMENTATION
     Route: 048
  3. TRAMADOL HCL [Concomitant]
     Route: 048
  4. LETROZOLE [Suspect]
     Indication: BONE NEOPLASM MALIGNANT
     Route: 048
     Dates: start: 20110716, end: 20110815
  5. AROMASIN [Suspect]
     Indication: BONE NEOPLASM MALIGNANT
     Route: 048
     Dates: start: 20110801, end: 20110801

REACTIONS (2)
  - HOT FLUSH [None]
  - BONE PAIN [None]
